FAERS Safety Report 4644019-4 (Version None)
Quarter: 2005Q2

REPORT INFORMATION
  Report Type: 
  Country: None (occurrence: None)
  Receive Date: 20050331
  Receipt Date: 20041229
  Transmission Date: 20051028
  Serious: No
  Sender: FDA-Public Use
  Company Number: 04P-163-0284971-00

PATIENT
  Age: 55 Year
  Sex: Female
  Weight: 139 kg

DRUGS (7)
  1. HUMIRA [Suspect]
     Indication: RHEUMATOID ARTHRITIS
     Dosage: 40 MG, 1 IN 2 WK, SUBCUTANEOUS
     Route: 058
     Dates: start: 20041101
  2. FOLIC ACID [Concomitant]
  3. TRIAMTERENE [Concomitant]
  4. NABUMETONE [Concomitant]
  5. PREDNISONE [Concomitant]
  6. HYDROCODONE BITARTRATE [Concomitant]
  7. PARACETAMOL [Concomitant]

REACTIONS (2)
  - INJECTION SITE PAIN [None]
  - MEDICATION ERROR [None]
